FAERS Safety Report 10424147 (Version 1)
Quarter: 2014Q3

REPORT INFORMATION
  Report Type: Spontaneous
  Country: US (occurrence: None)
  Receive Date: 20140722
  Receipt Date: 20140722
  Transmission Date: 20150326
  Serious: No
  Sender: FDA-Public Use
  Company Number: AEGR000472

PATIENT
  Age: 51 Year
  Sex: Male

DRUGS (3)
  1. LOSARTAN (LOSARTAN POTASSIUM) [Concomitant]
  2. JUXTAPID [Suspect]
     Active Substance: LOMITAPIDE MESYLATE
     Indication: TYPE IIA HYPERLIPIDAEMIA
     Route: 048
     Dates: start: 20140422
  3. PRILOSEC (OMEPRAZOLE) [Concomitant]
     Active Substance: OMEPRAZOLE MAGNESIUM

REACTIONS (5)
  - Fatigue [None]
  - Weight decreased [None]
  - Lethargy [None]
  - Hunger [None]
  - Asthenia [None]

NARRATIVE: CASE EVENT DATE: 201404
